FAERS Safety Report 8267038-8 (Version None)
Quarter: 2012Q2

REPORT INFORMATION
  Report Type: 
  Country: None (occurrence: None)
  Receive Date: 20120409
  Receipt Date: 20120403
  Transmission Date: 20120825
  Serious: No
  Sender: FDA-Public Use
  Company Number: US-PFIZER INC-2012062344

PATIENT
  Sex: Male

DRUGS (5)
  1. PERCOCET [Concomitant]
     Dosage: UNK
  2. FLANAX [Concomitant]
     Dosage: UNK
  3. ZESTORETIC [Concomitant]
     Dosage: UNK
  4. VIAGRA [Suspect]
     Dosage: 100 MG, UNK (1/1 PO DAILY PRN)
     Route: 048
  5. VALIUM [Concomitant]
     Dosage: UNK

REACTIONS (1)
  - THERAPEUTIC RESPONSE UNEXPECTED [None]
